FAERS Safety Report 20332506 (Version 2)
Quarter: 2022Q2

REPORT INFORMATION
  Report Type: Report from Study
  Country: EG (occurrence: EG)
  Receive Date: 20220113
  Receipt Date: 20220617
  Transmission Date: 20220721
  Serious: Yes (Other)
  Sender: FDA-Public Use
  Company Number: EG-NOVARTISPH-NVSC2022EG005932

PATIENT
  Age: 24 Year
  Sex: Female

DRUGS (9)
  1. GILENYA [Suspect]
     Active Substance: FINGOLIMOD HYDROCHLORIDE
     Indication: Multiple sclerosis
     Dosage: 0.5 MG, QD
     Route: 048
     Dates: start: 20210114
  2. GILENYA [Suspect]
     Active Substance: FINGOLIMOD HYDROCHLORIDE
     Dosage: 0.5 MG, QOD
     Route: 048
     Dates: start: 202110
  3. CHROMITRON [Concomitant]
     Indication: Mineral supplementation
     Dosage: 1 DOSAGE FORM, QD (SINCE SHE WAS ON IMURAN)
     Route: 048
     Dates: start: 201807
  4. OMEGA 3 PLUS [Concomitant]
     Indication: Mineral supplementation
     Dosage: 1 DOSAGE FORM, QD (SINCE SHE WAS ON IMURAN)
     Route: 048
     Dates: start: 201807
  5. FOLIC ACID [Concomitant]
     Active Substance: FOLIC ACID
     Indication: Mineral supplementation
     Dosage: 1 DOSAGE FORM, QD (SINCE SHE WAS ON IMURAN)
     Route: 048
     Dates: start: 201807
  6. VIDROP [Concomitant]
     Indication: Hepatic enzyme increased
     Dosage: 1 DOSAGE FORM, QD (SINCE SHE WAS ON IMURNAN)
     Route: 065
     Dates: start: 201807
  7. VIDROP [Concomitant]
     Dosage: 2 DOSAGE FORM, QW((SINCE SHE WAS ON IMURNAN))
     Route: 065
  8. URSOPLUS [Concomitant]
     Indication: Mineral supplementation
     Dosage: 2 DOSAGE FORM, QW (SINCE SHE WAS ON CELLCEPT)
     Route: 065
     Dates: start: 201908
  9. LUSTRAL [Concomitant]
     Active Substance: SERTRALINE HYDROCHLORIDE
     Indication: Product used for unknown indication
     Dosage: 1 DOSAGE FORM, QD (SINCE SHE WAS ON CELLCEPT)
     Route: 065
     Dates: start: 201908

REACTIONS (5)
  - Hepatic enzyme increased [Recovering/Resolving]
  - Immune system disorder [Unknown]
  - White blood cell count increased [Unknown]
  - Oedema peripheral [Recovering/Resolving]
  - Lymphocyte count decreased [Not Recovered/Not Resolved]

NARRATIVE: CASE EVENT DATE: 20211001
